FAERS Safety Report 13998495 (Version 4)
Quarter: 2017Q4

REPORT INFORMATION
  Report Type: Spontaneous
  Country: US (occurrence: US)
  Receive Date: 20170921
  Receipt Date: 20171201
  Transmission Date: 20180321
  Serious: Yes (Other)
  Sender: FDA-Public Use
  Company Number: PHEH2017US030389

PATIENT
  Age: 62 Year
  Sex: Female
  Weight: 85 kg

DRUGS (2)
  1. VOTRIENT [Suspect]
     Active Substance: PAZOPANIB HYDROCHLORIDE
     Indication: RENAL CANCER
     Dosage: 4 DF, QD (800 MG)
     Route: 048
     Dates: start: 20170422, end: 20171003
  2. VOTRIENT [Suspect]
     Active Substance: PAZOPANIB HYDROCHLORIDE
     Dosage: 3 DF, QD
     Route: 048
     Dates: start: 20171003

REACTIONS (7)
  - Headache [Unknown]
  - Vaginal infection [Recovered/Resolved]
  - Vaginal haemorrhage [Unknown]
  - Abdominal pain [Unknown]
  - Weight decreased [Unknown]
  - Vaginal discharge [Recovered/Resolved]
  - Diarrhoea [Unknown]

NARRATIVE: CASE EVENT DATE: 20170626
